FAERS Safety Report 24353795 (Version 1)
Quarter: 2024Q3

REPORT INFORMATION
  Report Type: Spontaneous
  Country: US (occurrence: US)
  Receive Date: 20240923
  Receipt Date: 20240923
  Transmission Date: 20241016
  Serious: No
  Sender: ROCHE
  Company Number: US-ROCHE-10000083211

PATIENT
  Sex: Female

DRUGS (1)
  1. ACTEMRA [Suspect]
     Active Substance: TOCILIZUMAB
     Indication: Product used for unknown indication
     Route: 058
     Dates: start: 2022

REACTIONS (8)
  - Wrong technique in product usage process [Unknown]
  - Drug delivery system malfunction [Unknown]
  - Device defective [Unknown]
  - Device issue [Unknown]
  - Product complaint [Unknown]
  - Needle issue [Unknown]
  - Cough [Unknown]
  - Product knowledge deficit [Unknown]
